FAERS Safety Report 23852119 (Version 1)
Quarter: 2024Q2

REPORT INFORMATION
  Report Type: Spontaneous
  Country: US (occurrence: None)
  Receive Date: 20240513
  Receipt Date: 20240513
  Transmission Date: 20240716
  Serious: Yes (Hospitalization)
  Sender: FDA-Public Use
  Company Number: None

PATIENT
  Age: 56 Year
  Sex: Male

DRUGS (1)
  1. BALVERSA [Suspect]
     Active Substance: ERDAFITINIB
     Indication: Neoplasm
     Dosage: 8MG DAILY BY MOUTH
     Route: 048
     Dates: start: 202404

REACTIONS (2)
  - Fall [None]
  - Balance disorder [None]

NARRATIVE: CASE EVENT DATE: 20240429
